FAERS Safety Report 21600906 (Version 2)
Quarter: 2023Q2

REPORT INFORMATION
  Report Type: Report from Study
  Country: US (occurrence: US)
  Receive Date: 20221116
  Receipt Date: 20230622
  Transmission Date: 20230721
  Serious: No
  Sender: FDA-Public Use
  Company Number: US-ABBVIE-4155842

PATIENT
  Age: 56 Year
  Sex: Female

DRUGS (2)
  1. HUMIRA [Suspect]
     Active Substance: ADALIMUMAB
     Indication: Psoriatic arthropathy
     Dosage: CITRATE FREE, FORM STRENGTH: 40 MILLIGRAM
     Route: 058
     Dates: start: 20220520
  2. PFIZER-BIONTECH COVID-19 VACCINE [Concomitant]
     Active Substance: TOZINAMERAN
     Indication: COVID-19 immunisation
     Dosage: 01 IN 01 ONCE
     Route: 030

REACTIONS (5)
  - Therapeutic response shortened [Unknown]
  - Psoriasis [Recovering/Resolving]
  - Psoriatic arthropathy [Recovering/Resolving]
  - Skin irritation [Unknown]
  - Weight increased [Unknown]

NARRATIVE: CASE EVENT DATE: 20230501
